FAERS Safety Report 9759035 (Version 1)
Quarter: 2013Q4

REPORT INFORMATION
  Report Type: Spontaneous
  Country: US (occurrence: None)
  Receive Date: 20131216
  Receipt Date: 20131216
  Transmission Date: 20140711
  Serious: Yes (Disabling, Other)
  Sender: FDA-Public Use
  Company Number: 163-21880-12092227(0)

PATIENT
  Age: 78 Year
  Sex: Female

DRUGS (1)
  1. REVLIMID(LENALIDOMIDE)(15 MILLIGRAM, CAPSULES) [Suspect]
     Indication: PLASMA CELL MYELOMA
     Dosage: 15 MG, 21 IN 28 D, PO? ? ? ? ? ? ?

REACTIONS (7)
  - Fatigue [None]
  - Stomatitis [None]
  - Dysgeusia [None]
  - Diarrhoea [None]
  - Constipation [None]
  - Bacterial infection [None]
  - Pruritus [None]
